FAERS Safety Report 9422189 (Version 1)
Quarter: 2013Q3

REPORT INFORMATION
  Report Type: Spontaneous
  Country: US (occurrence: US)
  Receive Date: 20130726
  Receipt Date: 20130726
  Transmission Date: 20140515
  Serious: Yes (Other)
  Sender: FDA-Public Use
  Company Number: US-JNJFOC-20130710479

PATIENT
  Sex: 0

DRUGS (1)
  1. DOXORUBICIN [Suspect]
     Indication: BREAST CANCER
     Route: 042

REACTIONS (1)
  - Pneumothorax [Unknown]
